FAERS Safety Report 8553711-0 (Version None)
Quarter: 2012Q3

REPORT INFORMATION
  Report Type: 
  Country: None (occurrence: None)
  Receive Date: 20120731
  Receipt Date: 20120724
  Transmission Date: 20120928
  Serious: Yes (Other)
  Sender: FDA-Public Use
  Company Number: JP-PFIZER INC-2012179149

PATIENT
  Age: 89 Year
  Sex: Female

DRUGS (3)
  1. XALATAN [Suspect]
     Route: 047
  2. DETANTOL [Concomitant]
     Route: 047
  3. AZOPT [Concomitant]
     Route: 047

REACTIONS (2)
  - INFECTION [None]
  - EYE DISCHARGE [None]
